FAERS Safety Report 7277119-3 (Version None)
Quarter: 2011Q1

REPORT INFORMATION
  Report Type: 
  Country: None (occurrence: None)
  Receive Date: 20110202
  Receipt Date: 20110202
  Transmission Date: 20110831
  Serious: Yes (Death, Other)
  Sender: FDA-Public Use
  Company Number: None

PATIENT
  Sex: Female
  Weight: 74.8435 kg

DRUGS (1)
  1. ZOLOFT [Suspect]
     Indication: POST-TRAUMATIC STRESS DISORDER
     Dosage: 100 MG 1 A DAY
     Dates: start: 20100701, end: 20110114

REACTIONS (3)
  - CONDITION AGGRAVATED [None]
  - CRYING [None]
  - DRUG DOSE OMISSION [None]
